FAERS Safety Report 14870531 (Version 1)
Quarter: 2018Q2

REPORT INFORMATION
  Report Type: Spontaneous
  Country: US (occurrence: US)
  Receive Date: 20180509
  Receipt Date: 20180509
  Transmission Date: 20180711
  Serious: Yes (Hospitalization)
  Sender: FDA-Public Use
  Company Number: US-APOTEX-2018AP013405

PATIENT
  Age: 67 Year
  Sex: Male

DRUGS (8)
  1. RISPERIDONE. [Concomitant]
     Active Substance: RISPERIDONE
     Indication: HALLUCINATION, AUDITORY
     Dosage: UNK
     Route: 065
  2. LORAZEPAM. [Suspect]
     Active Substance: LORAZEPAM
     Indication: PANIC ATTACK
  3. ZIPRASIDONE. [Concomitant]
     Active Substance: ZIPRASIDONE
     Indication: HALLUCINATION, AUDITORY
     Dosage: UNK
     Route: 065
  4. SUVOREXANT. [Concomitant]
     Active Substance: SUVOREXANT
     Indication: INSOMNIA
     Dosage: UNK
     Route: 065
  5. CITALOPRAM [Suspect]
     Active Substance: CITALOPRAM HYDROBROMIDE
     Indication: ANXIETY
  6. CITALOPRAM [Suspect]
     Active Substance: CITALOPRAM HYDROBROMIDE
     Indication: DEPRESSION
     Dosage: UNK
     Route: 065
  7. LORAZEPAM. [Suspect]
     Active Substance: LORAZEPAM
     Indication: ANXIETY
     Dosage: UNK
     Route: 065
  8. BENZTROPINE. [Concomitant]
     Active Substance: BENZTROPINE
     Indication: PROPHYLAXIS
     Route: 065

REACTIONS (4)
  - Impaired work ability [Unknown]
  - Anxiety [Unknown]
  - Depression [Unknown]
  - Drug ineffective [Unknown]
